FAERS Safety Report 8326874-X (Version None)
Quarter: 2012Q2

REPORT INFORMATION
  Report Type: 
  Country: None (occurrence: None)
  Receive Date: 20120501
  Receipt Date: 20120416
  Transmission Date: 20120825
  Serious: Yes (Hospitalization)
  Sender: FDA-Public Use
  Company Number: US-ARROW GEN-2012-06869

PATIENT
  Age: 68 Year
  Sex: Male

DRUGS (2)
  1. ZOLPIDEM TARTRATE [Suspect]
     Indication: MUSCULOSKELETAL PAIN
     Dosage: 30 TO 40 MG SINGLE
     Route: 048
  2. ZOLPIDEM TARTRATE [Suspect]
     Dosage: UNK
     Route: 048

REACTIONS (4)
  - LOSS OF CONSCIOUSNESS [None]
  - DELIRIUM [None]
  - ABNORMAL BEHAVIOUR [None]
  - DRUG ABUSE [None]
